FAERS Safety Report 9522847 (Version 1)
Quarter: 2013Q1

REPORT INFORMATION
  Report Type: Spontaneous
  Country: US (occurrence: None)
  Receive Date: 20130305
  Receipt Date: 20130305
  Transmission Date: 20140127
  Serious: Yes (Other)
  Sender: FDA-Public Use
  Company Number: 163-21880-12080453

PATIENT
  Age: 79 Year
  Sex: Male

DRUGS (2)
  1. REVLIMID [Suspect]
     Indication: PLASMA CELL MYELOMA
     Dosage: 25 MG, 1 IN 1 D, PO
     Route: 048
     Dates: start: 20111025, end: 20111202
  2. DECADRON (DEXAMETHASONE) [Concomitant]

REACTIONS (4)
  - Drug hypersensitivity [None]
  - Rash pruritic [None]
  - Muscle tightness [None]
  - Abdominal discomfort [None]
